FAERS Safety Report 5034491-2 (Version None)
Quarter: 2006Q2

REPORT INFORMATION
  Report Type: 
  Country: None (occurrence: None)
  Receive Date: 20060626
  Receipt Date: 20060202
  Transmission Date: 20061013
  Serious: Yes (Life-Threatening, Other)
  Sender: FDA-Public Use
  Company Number: GB-BRISTOL-MYERS SQUIBB COMPANY-13269550

PATIENT
  Age: 43 Year
  Sex: Female

DRUGS (7)
  1. TAXOL [Suspect]
     Indication: GERM CELL CANCER
     Route: 042
     Dates: start: 20060121, end: 20060126
  2. CISPLATIN [Suspect]
     Indication: GERM CELL CANCER
     Route: 042
     Dates: start: 20060121, end: 20060126
  3. ETOPOSIDE [Suspect]
     Indication: GERM CELL CANCER
     Route: 042
     Dates: start: 20060121, end: 20060126
  4. BLEOMYCIN SULFATE [Suspect]
     Dates: start: 20060121, end: 20060121
  5. OMEPRAZOLE [Concomitant]
  6. ALLOPURINOL [Concomitant]
  7. ZOPICLONE [Concomitant]

REACTIONS (4)
  - CHEST PAIN [None]
  - DIARRHOEA [None]
  - HYPOTENSION [None]
  - NEUTROPENIC SEPSIS [None]
